FAERS Safety Report 6448136-8 (Version None)
Quarter: 2009Q4

REPORT INFORMATION
  Report Type: 
  Country: None (occurrence: None)
  Receive Date: 20091120
  Receipt Date: 20091109
  Transmission Date: 20100525
  Serious: Yes (Other)
  Sender: FDA-Public Use
  Company Number: US-TYCO HEALTHCARE/MALLINCKRODT-T200902068

PATIENT
  Age: 70 Year
  Sex: Male

DRUGS (29)
  1. MORPHINE [Suspect]
  2. THALIDOMIDE [Suspect]
     Indication: MULTIPLE MYELOMA
  3. DEXAMETHASONE [Suspect]
     Indication: MULTIPLE MYELOMA
  4. MELOXICAM [Suspect]
  5. PAMIDRONATE DISODIUM [Suspect]
     Dosage: UNK
  6. CEFEPIME [Suspect]
     Route: 042
  7. VANCOMYCIN [Suspect]
     Route: 042
  8. FLUCONAZOLE [Suspect]
     Route: 048
  9. ACETAMINOPHEN [Suspect]
  10. HEPARIN [Suspect]
  11. ENOXAPARIN SODIUM [Suspect]
  12. MEROPENEM [Suspect]
  13. DAPTOMYCIN [Suspect]
  14. TOBRAMYCIN [Suspect]
  15. CASPOFUNGIN ACETATE [Suspect]
  16. HYDROCODONE [Concomitant]
  17. RANITIDINE HYDROCHLORIDE [Concomitant]
  18. OMEPRAZOLE [Concomitant]
  19. PROMETHAZINE HCL [Concomitant]
  20. LIDOCAINE [Concomitant]
  21. POLYETHYLENE GLYCOL [Concomitant]
  22. TESTOSTERONE ENANTHATE [Concomitant]
  23. NALOXONE HYDROCHLORIDE [Concomitant]
  24. PANTOPRAZOLE SODIUM [Concomitant]
  25. DIPHENHYDRAMINE HYDROCHLORIDE [Concomitant]
  26. ZOLPIDEM TARTRATE [Concomitant]
  27. AMIODARONE HYDROCHLORIDE [Concomitant]
  28. ALPRAZOLAM [Concomitant]
  29. FILGRASTIM [Concomitant]

REACTIONS (4)
  - ACUTE GENERALISED EXANTHEMATOUS PUSTULOSIS [None]
  - ATRIAL FIBRILLATION [None]
  - LETHARGY [None]
  - UNRESPONSIVE TO STIMULI [None]
